FAERS Safety Report 17942416 (Version 1)
Quarter: 2020Q2

REPORT INFORMATION
  Report Type: Spontaneous
  Country: AU (occurrence: AU)
  Receive Date: 20200624
  Receipt Date: 20200624
  Transmission Date: 20200714
  Serious: Yes (Other)
  Sender: FDA-Public Use
  Company Number: NVSC2020AU073570

PATIENT

DRUGS (2)
  1. METHOTREXATE. [Suspect]
     Active Substance: METHOTREXATE
     Indication: PROPHYLAXIS
     Dosage: 3 G/M2 (HIGH DOSE)
     Route: 065
  2. METHOTREXATE. [Suspect]
     Active Substance: METHOTREXATE
     Dosage: 2.25 G/M2 (WAS DELAYED TOTAL 44 DAYS)
     Route: 065

REACTIONS (2)
  - Nephropathy toxic [Unknown]
  - Product use in unapproved indication [Unknown]
